FAERS Safety Report 14157198 (Version 1)
Quarter: 2017Q4

REPORT INFORMATION
  Report Type: Spontaneous
  Country: TW (occurrence: TW)
  Receive Date: 20171103
  Receipt Date: 20171103
  Transmission Date: 20180321
  Serious: Yes (Life-Threatening, Hospitalization)
  Sender: FDA-Public Use
  Company Number: TW-MYLANLABS-2017M1068746

PATIENT
  Age: 25 Year
  Sex: Female

DRUGS (1)
  1. KETAMINE [Suspect]
     Active Substance: KETAMINE
     Indication: PRODUCT USED FOR UNKNOWN INDICATION
     Route: 065

REACTIONS (11)
  - Lower urinary tract symptoms [Unknown]
  - Drug abuse [Unknown]
  - Ventricular tachycardia [Recovered/Resolved]
  - Hyperkalaemia [Unknown]
  - Acute kidney injury [Unknown]
  - Metabolic acidosis [Unknown]
  - Escherichia infection [Not Recovered/Not Resolved]
  - Hydronephrosis [Recovering/Resolving]
  - Cardio-respiratory arrest [Recovered/Resolved]
  - Electrocardiogram QRS complex prolonged [Unknown]
  - Urosepsis [Not Recovered/Not Resolved]
